FAERS Safety Report 19861516 (Version 1)
Quarter: 2021Q3

REPORT INFORMATION
  Report Type: Spontaneous
  Country: US (occurrence: US)
  Receive Date: 20210918
  Receipt Date: 20210918
  Transmission Date: 20211014
  Serious: No
  Sender: FDA-Public Use
  Company Number: None

PATIENT
  Age: 43 Year
  Sex: Female
  Weight: 84.7 kg

DRUGS (2)
  1. TAXOTERE [Suspect]
     Active Substance: DOCETAXEL
     Dates: end: 20210908
  2. ERBITUX [Suspect]
     Active Substance: CETUXIMAB
     Dates: end: 20210901

REACTIONS (7)
  - Back pain [None]
  - Chest discomfort [None]
  - Flushing [None]
  - Dizziness [None]
  - Dyspnoea [None]
  - Infusion related reaction [None]
  - Blood pressure increased [None]

NARRATIVE: CASE EVENT DATE: 20210908
